FAERS Safety Report 18532214 (Version 1)
Quarter: 2020Q4

REPORT INFORMATION
  Report Type: Spontaneous
  Country: IT (occurrence: IT)
  Receive Date: 20201123
  Receipt Date: 20201123
  Transmission Date: 20210114
  Serious: Yes (Other)
  Sender: FDA-Public Use
  Company Number: IT-BION-009201

PATIENT
  Age: 65 Year
  Sex: Male

DRUGS (3)
  1. TETRABENAZINE. [Suspect]
     Active Substance: TETRABENAZINE
     Indication: HUNTINGTON^S DISEASE
     Dosage: SLOWLY INCREASED TO 75 MG/DAY?HIKED TO 100MG/D
  2. VENLAFAXINE/VENLAFAXINE HYDROCHLORIDE [Concomitant]
     Active Substance: VENLAFAXINE HYDROCHLORIDE
     Indication: DEPRESSION
  3. VALPROATE [Concomitant]
     Active Substance: VALPROIC ACID
     Indication: DEPRESSION

REACTIONS (1)
  - Tardive dyskinesia [Recovered/Resolved]
